FAERS Safety Report 6626206-9 (Version None)
Quarter: 2010Q1

REPORT INFORMATION
  Report Type: 
  Country: None (occurrence: None)
  Receive Date: 20100310
  Receipt Date: 20100304
  Transmission Date: 20100710
  Serious: Yes (Hospitalization)
  Sender: FDA-Public Use
  Company Number: FR-CEPHALON-2009018625

PATIENT
  Sex: Male
  Weight: 77 kg

DRUGS (9)
  1. TREANDA [Suspect]
     Indication: B-CELL LYMPHOMA
     Dates: start: 20090812, end: 20090923
  2. BACTRIM [Suspect]
     Route: 048
     Dates: start: 20090701, end: 20091021
  3. ZELITREX [Suspect]
     Dates: start: 20090903, end: 20091021
  4. MOPRAL [Suspect]
     Dates: end: 20091021
  5. GRANOCYTE 34 [Suspect]
     Dates: start: 20090817, end: 20090826
  6. GRANOCYTE 34 [Suspect]
     Dates: start: 20090907, end: 20090916
  7. GRANOCYTE 34 [Suspect]
     Dates: start: 20090927, end: 20091006
  8. EPREX [Suspect]
     Dates: start: 20090813
  9. PREVISCAN [Suspect]

REACTIONS (2)
  - CYTOLYTIC HEPATITIS [None]
  - HEPATITIS CHOLESTATIC [None]
